FAERS Safety Report 8998402 (Version 1)
Quarter: 2013Q1

REPORT INFORMATION
  Report Type: Report from Study
  Country: US (occurrence: US)
  Receive Date: 20130103
  Receipt Date: 20130103
  Transmission Date: 20140127
  Serious: Yes (Hospitalization)
  Sender: FDA-Public Use
  Company Number: US-ROCHE-1120335

PATIENT
  Age: 53 Year
  Sex: Female

DRUGS (15)
  1. TRASTUZUMAB [Suspect]
     Indication: BREAST CANCER METASTATIC
     Route: 065
     Dates: start: 20120824
  2. PERTUZUMAB [Suspect]
     Indication: BREAST CANCER METASTATIC
     Route: 065
     Dates: start: 20120824
  3. PACLITAXEL [Suspect]
     Indication: BREAST CANCER METASTATIC
     Route: 065
     Dates: start: 20120824
  4. ACETAMINOPHEN [Concomitant]
     Route: 065
     Dates: start: 20120824, end: 20121011
  5. ADVAIR [Concomitant]
     Route: 065
     Dates: start: 20120824
  6. ALPRAZOLAM [Concomitant]
     Route: 065
     Dates: start: 20120824
  7. ASPIRIN [Concomitant]
     Route: 065
     Dates: start: 20120824, end: 20121011
  8. ATORVASTATIN [Concomitant]
     Route: 065
     Dates: start: 20120824
  9. DIOVAN [Concomitant]
     Route: 065
     Dates: start: 20120824
  10. MONTELUKAST SODIUM [Concomitant]
     Route: 065
     Dates: start: 20120824
  11. NAPROXEN SODIUM [Concomitant]
     Route: 065
     Dates: start: 20120824, end: 20121011
  12. PROCHLORPERAZINE [Concomitant]
     Route: 065
     Dates: start: 20120824, end: 20121011
  13. SITAGLIPTIN PHOSPHATE [Concomitant]
     Route: 065
     Dates: start: 20120824
  14. METFORMIN HYDROCHLORIDE [Concomitant]
     Route: 065
     Dates: start: 20120824
  15. VITAMIN D [Concomitant]
     Route: 065
     Dates: start: 20120824

REACTIONS (6)
  - Diarrhoea [Recovered/Resolved]
  - Nausea [Recovered/Resolved]
  - Embolism [Recovered/Resolved]
  - Dehydration [Recovered/Resolved]
  - Muscular weakness [Recovered/Resolved]
  - Decreased appetite [Recovered/Resolved]
